FAERS Safety Report 9028029 (Version 1)
Quarter: 2013Q1

REPORT INFORMATION
  Report Type: Report from Study
  Country: JP (occurrence: JP)
  Receive Date: 20130123
  Receipt Date: 20130123
  Transmission Date: 20140127
  Serious: Yes (Hospitalization)
  Sender: FDA-Public Use
  Company Number: JP-ABBOTT-09P-087-0604800-00

PATIENT
  Age: 36 Year
  Sex: Male

DRUGS (8)
  1. KALETRA TABLETS [Suspect]
     Indication: HIV INFECTION
     Dosage: 4 DOSAGE FORMS DAILY
     Route: 048
     Dates: start: 20080806
  2. KALETRA TABLETS [Suspect]
  3. EMTRICITABINE W/TENOFOVIR [Suspect]
     Indication: HIV INFECTION
     Route: 048
     Dates: start: 20080806
  4. SULFAMETHOXAZOLE AND TRIMETHOPRIM [Concomitant]
     Indication: ANTIFUNGAL PROPHYLAXIS
     Route: 048
     Dates: start: 20080530, end: 20080621
  5. PENTAMIDINE ISETHIONATE [Concomitant]
     Indication: ANTIFUNGAL PROPHYLAXIS
     Route: 055
     Dates: start: 20080612, end: 20090318
  6. LOPERAMIDE HYDROCHLORIDE [Concomitant]
     Indication: DIARRHOEA
     Dates: start: 20080917
  7. LOPERAMIDE HYDROCHLORIDE [Concomitant]
     Indication: PROPHYLAXIS
  8. ZOLPIDEM TARTRATE [Concomitant]
     Indication: PRODUCT USED FOR UNKNOWN INDICATION

REACTIONS (7)
  - Hepatitis B [Recovering/Resolving]
  - Immune reconstitution inflammatory syndrome [Recovering/Resolving]
  - Herpes zoster [Recovering/Resolving]
  - Immune reconstitution inflammatory syndrome [Recovering/Resolving]
  - Syphilis [Recovering/Resolving]
  - Blood triglycerides increased [Unknown]
  - Acute sinusitis [Recovering/Resolving]
